FAERS Safety Report 13455651 (Version 1)
Quarter: 2017Q2

REPORT INFORMATION
  Report Type: Spontaneous
  Country: US (occurrence: US)
  Receive Date: 20170418
  Receipt Date: 20170418
  Transmission Date: 20170830
  Serious: Yes (Other)
  Sender: FDA-Public Use
  Company Number: None

PATIENT
  Age: 53 Year
  Sex: Female
  Weight: 85.5 kg

DRUGS (5)
  1. MULTIVIAMIN [Concomitant]
  2. REMICADE [Concomitant]
     Active Substance: INFLIXIMAB
  3. IMURAN [Concomitant]
     Active Substance: AZATHIOPRINE
  4. TACROLIMUS OINTMENT [Suspect]
     Active Substance: TACROLIMUS
     Indication: RASH
     Dosage: ?          QUANTITY:90 30 G;?
     Route: 061
     Dates: start: 20170317
  5. BENAZAPRIL [Concomitant]

REACTIONS (1)
  - Heart rate increased [None]

NARRATIVE: CASE EVENT DATE: 20170317
